FAERS Safety Report 19762751 (Version 2)
Quarter: 2021Q4

REPORT INFORMATION
  Report Type: Spontaneous
  Country: CA (occurrence: CA)
  Receive Date: 20210828
  Receipt Date: 20211202
  Transmission Date: 20220303
  Serious: Yes (Other)
  Sender: FDA-Public Use
  Company Number: CA-TAKEDA-2021TUS051992

PATIENT
  Age: 53 Year
  Sex: Female

DRUGS (4)
  1. HUMAN IMMUNOGLOBULIN G [Suspect]
     Active Substance: HUMAN IMMUNOGLOBULIN G
     Indication: Paraneoplastic dermatomyositis
     Dosage: 80.0 GRAM, QD
     Route: 042
  2. DALTEPARIN SODIUM [Concomitant]
     Active Substance: DALTEPARIN SODIUM
     Indication: Venous thrombosis
     Route: 065
  3. METHYLPREDNISOLONE [Concomitant]
     Active Substance: METHYLPREDNISOLONE
     Route: 042
  4. PREDNISONE [Concomitant]
     Active Substance: PREDNISONE
     Route: 048

REACTIONS (5)
  - Autoimmune haemolytic anaemia [Unknown]
  - Haematoma [Unknown]
  - Retroperitoneal haemorrhage [Unknown]
  - Shock haemorrhagic [Unknown]
  - Product use in unapproved indication [Unknown]
